FAERS Safety Report 9503859 (Version 1)
Quarter: 2013Q3

REPORT INFORMATION
  Report Type: Spontaneous
  Country: GB (occurrence: GB)
  Receive Date: 20130906
  Receipt Date: 20130906
  Transmission Date: 20140515
  Serious: Yes (Other)
  Sender: FDA-Public Use
  Company Number: GB-ASTRAZENECA-2013SE66527

PATIENT
  Age: 65 Year
  Sex: Female
  Weight: 58.6 kg

DRUGS (3)
  1. ARIMIDEX [Suspect]
     Indication: PROPHYLAXIS
     Route: 048
  2. ARIMIDEX [Suspect]
     Indication: PROPHYLAXIS
     Route: 048
  3. ARIMIDEX [Suspect]
     Indication: PROPHYLAXIS
     Route: 048

REACTIONS (13)
  - Depressed mood [Unknown]
  - Dizziness [Unknown]
  - Feelings of worthlessness [Unknown]
  - Nightmare [Unknown]
  - Insomnia [Unknown]
  - Tearfulness [Unknown]
  - Gait disturbance [Unknown]
  - Headache [Unknown]
  - Arthralgia [Unknown]
  - Myalgia [Unknown]
  - Nausea [Unknown]
  - Hyperhidrosis [Unknown]
  - Suspected counterfeit product [Unknown]
